FAERS Safety Report 4450173-X (Version None)
Quarter: 2004Q3

REPORT INFORMATION
  Report Type: 
  Country: None (occurrence: None)
  Receive Date: 20040914
  Receipt Date: 20040831
  Transmission Date: 20050211
  Serious: Yes (Other)
  Sender: FDA-Public Use
  Company Number: HQWYE856707SEP04

PATIENT
  Age: 63 Year
  Sex: Female
  Weight: 99.88 kg

DRUGS (1)
  1. EFFEXOR [Suspect]
     Indication: DEPRESSION
     Dosage: 37.5 MG 1X PER 1 DAY
     Dates: start: 20030101, end: 20040818

REACTIONS (5)
  - DIZZINESS [None]
  - DRUG WITHDRAWAL SYNDROME [None]
  - HEADACHE [None]
  - HYPERTENSION [None]
  - TREATMENT NONCOMPLIANCE [None]
